FAERS Safety Report 19257886 (Version 1)
Quarter: 2021Q2

REPORT INFORMATION
  Report Type: Spontaneous
  Country: HU (occurrence: HU)
  Receive Date: 20210514
  Receipt Date: 20210514
  Transmission Date: 20210717
  Serious: Yes (Hospitalization)
  Sender: FDA-Public Use
  Company Number: HU-VERTEX PHARMACEUTICALS-2021-005641

PATIENT
  Sex: Female

DRUGS (8)
  1. KREON 25000 [Concomitant]
     Active Substance: PANCRELIPASE
     Dosage: 10?12CAPS/DAY
  2. ORKAMBI [Suspect]
     Active Substance: IVACAFTOR\LUMACAFTOR
     Indication: CYSTIC FIBROSIS
     Dosage: 2 DOSAGE FORM, BID (200 MG LUMACAFTOR/125 MG IVACAFTOR)
     Route: 048
     Dates: start: 20210301, end: 20210310
  3. URSOFALK [Concomitant]
     Active Substance: URSODIOL
     Dosage: 2X1 TBL./DAY
  4. LEGALON [Concomitant]
     Active Substance: DIETARY SUPPLEMENT\HERBALS\MILK THISTLE
     Dosage: 2X1 TBL./DAY
  5. PULMOZYME [Concomitant]
     Active Substance: DORNASE ALFA
     Dosage: 1AMP/DAY
  6. VITAMIN A NOS [Concomitant]
     Active Substance: VITAMIN A
     Dosage: 25000NE WEEKLY
  7. VITAMIN E NOS [Concomitant]
     Active Substance: .ALPHA.-TOCOPHEROL
     Dosage: 400 MG, QD
  8. VITAMIN D NOS [Concomitant]
     Active Substance: VITAMIN D NOS
     Dosage: 3000 NE/DAY

REACTIONS (1)
  - Anorexia nervosa [Not Recovered/Not Resolved]
